FAERS Safety Report 9967434 (Version 2)
Quarter: 2014Q1

REPORT INFORMATION
  Report Type: Report from Study
  Country: US (occurrence: US)
  Receive Date: 20140305
  Receipt Date: 20140305
  Transmission Date: 20141002
  Serious: Yes (Hospitalization)
  Sender: FDA-Public Use
  Company Number: US-ABBVIE-13P-163-1133518-00

PATIENT
  Age: 42 Year
  Sex: Male
  Weight: 65.83 kg

DRUGS (2)
  1. HUMIRA [Suspect]
     Indication: PSORIATIC ARTHROPATHY
     Route: 058
     Dates: start: 20110228, end: 201210
  2. HUMIRA [Suspect]
     Route: 058
     Dates: start: 20130719

REACTIONS (5)
  - Localised infection [Recovered/Resolved]
  - Wound [Recovered/Resolved]
  - Rash [Recovered/Resolved]
  - Cellulitis [Recovered/Resolved]
  - Limb injury [Unknown]
